FAERS Safety Report 22348176 (Version 1)
Quarter: 2023Q2

REPORT INFORMATION
  Report Type: Spontaneous
  Country: US (occurrence: None)
  Receive Date: 20230522
  Receipt Date: 20230522
  Transmission Date: 20230722
  Serious: Yes (Other)
  Sender: FDA-Public Use
  Company Number: 2023A114462

PATIENT
  Sex: Male

DRUGS (1)
  1. BREZTRI [Suspect]
     Active Substance: BUDESONIDE\FORMOTEROL\GLYCOPYRROLATE
     Indication: Chronic obstructive pulmonary disease
     Dosage: 160MCG/9MCG/4.8MCG, TWO PUFFS TWO TIMES A DAY
     Route: 055

REACTIONS (4)
  - Dementia [Unknown]
  - Device use issue [Unknown]
  - Incorrect dose administered by device [Unknown]
  - Device malfunction [Unknown]
